FAERS Safety Report 9391712 (Version 2)
Quarter: 2013Q3

REPORT INFORMATION
  Report Type: Spontaneous
  Country: BG (occurrence: BG)
  Receive Date: 20130709
  Receipt Date: 20130712
  Transmission Date: 20140515
  Serious: Yes (Disabling, Other)
  Sender: FDA-Public Use
  Company Number: PHHY2013BG069796

PATIENT
  Age: 29 Year
  Sex: Male

DRUGS (4)
  1. RIFAMPICIN [Suspect]
     Indication: PULMONARY TUBERCULOSIS
  2. ISONIAZID [Suspect]
     Indication: PULMONARY TUBERCULOSIS
  3. ETHAMBUTOL [Suspect]
     Indication: PULMONARY TUBERCULOSIS
  4. PYRAZINAMIDE [Suspect]
     Indication: PULMONARY TUBERCULOSIS

REACTIONS (21)
  - Mitochondrial neurogastrointestinal encephalopathy [Unknown]
  - Gastrointestinal disorder [Unknown]
  - Cachexia [Unknown]
  - Polyneuropathy [Unknown]
  - Ophthalmoplegia [Unknown]
  - Deafness bilateral [Unknown]
  - Cognitive disorder [Unknown]
  - Eyelid ptosis [Unknown]
  - Leukoencephalopathy [Unknown]
  - Gait disturbance [Unknown]
  - Increased appetite [Unknown]
  - Weight increased [Unknown]
  - Asthenia [Unknown]
  - Abdominal pain [Unknown]
  - Hypoacusis [Unknown]
  - Muscular weakness [Unknown]
  - Areflexia [Unknown]
  - Attention deficit/hyperactivity disorder [Unknown]
  - Dyspraxia [Unknown]
  - Optic atrophy [Unknown]
  - Memory impairment [Unknown]
